FAERS Safety Report 25185592 (Version 1)
Quarter: 2025Q2

REPORT INFORMATION
  Report Type: Spontaneous
  Country: FI (occurrence: FI)
  Receive Date: 20250410
  Receipt Date: 20250410
  Transmission Date: 20250716
  Serious: Yes (Death, Congenital Anomaly)
  Sender: ABBVIE
  Company Number: None

PATIENT

DRUGS (1)
  1. ASACOL [Suspect]
     Active Substance: MESALAMINE
     Indication: Maternal exposure timing unspecified

REACTIONS (3)
  - Abortion induced [Fatal]
  - Hypoplastic left heart syndrome [Not Recovered/Not Resolved]
  - Foetal exposure during pregnancy [Unknown]

NARRATIVE: CASE EVENT DATE: 20241201
